FAERS Safety Report 24005836 (Version 1)
Quarter: 2024Q2

REPORT INFORMATION
  Report Type: Spontaneous
  Country: US (occurrence: US)
  Receive Date: 20240624
  Receipt Date: 20240624
  Transmission Date: 20240716
  Serious: No
  Sender: FDA-Public Use
  Company Number: US-SA-SAC20240620000235

PATIENT
  Sex: Female
  Weight: 52.6 kg

DRUGS (5)
  1. DUPIXENT [Suspect]
     Active Substance: DUPILUMAB
     Indication: Dermatitis atopic
     Dosage: 300 MG, QOW
     Route: 058
  2. PREBIOTICS NOS [Concomitant]
  3. ESTRACE [Concomitant]
     Active Substance: ESTRADIOL
  4. BAYER ASPIRIN [Concomitant]
     Active Substance: ASPIRIN
  5. VITAMIN D NOS [Concomitant]
     Active Substance: CHOLECALCIFEROL\ERGOCALCIFEROL

REACTIONS (3)
  - Muscle spasms [Unknown]
  - Injection site pain [Unknown]
  - Inappropriate schedule of product administration [Unknown]

NARRATIVE: CASE EVENT DATE: 20220101
